FAERS Safety Report 25576296 (Version 1)
Quarter: 2025Q3

REPORT INFORMATION
  Report Type: Spontaneous
  Country: GB (occurrence: GB)
  Receive Date: 20250718
  Receipt Date: 20250718
  Transmission Date: 20251021
  Serious: Yes (Disabling)
  Sender: AUROBINDO
  Company Number: GB-MHRA-MED-202507091353523290-KLDHS

PATIENT
  Age: 89 Year
  Sex: Male

DRUGS (1)
  1. AMLODIPINE [Suspect]
     Active Substance: AMLODIPINE BESYLATE
     Indication: Blood pressure measurement
     Dosage: 10 MILLIGRAM, ONCE A DAY
     Route: 065
     Dates: start: 20100709

REACTIONS (1)
  - Feeling drunk [Recovered/Resolved]

NARRATIVE: CASE EVENT DATE: 20250708
